FAERS Safety Report 20044912 (Version 1)
Quarter: 2021Q4

REPORT INFORMATION
  Report Type: Spontaneous
  Country: US (occurrence: US)
  Receive Date: 20211108
  Receipt Date: 20211108
  Transmission Date: 20220303
  Serious: Yes (Other)
  Sender: FDA-Public Use
  Company Number: US-MYLANLABS-2021M1081872

PATIENT
  Age: 79 Year
  Sex: Male

DRUGS (8)
  1. METHOTREXATE [Suspect]
     Active Substance: METHOTREXATE
     Indication: Large granular lymphocytosis
     Dosage: 15 MILLIGRAM, QW
     Route: 065
  2. METHOTREXATE [Suspect]
     Active Substance: METHOTREXATE
     Dosage: 10 MILLIGRAM, QW
     Route: 065
  3. PREDNISONE [Suspect]
     Active Substance: PREDNISONE
     Indication: Large granular lymphocytosis
     Dosage: 60 MILLIGRAM, QD, THIS WAS LATER TAPERED OVER 8 WEEKS
     Route: 065
  4. PREDNISONE [Suspect]
     Active Substance: PREDNISONE
     Dosage: 40 MILLIGRAM, QD, A SHORT COURSE WAS GIVEN, LATER TAPERED OVER 14 DAYS
     Route: 065
  5. TACROLIMUS [Suspect]
     Active Substance: TACROLIMUS
     Indication: Large granular lymphocytosis
     Dosage: 4 MG DAILY IN DIVIDED DOSES
     Route: 065
  6. EPOETIN ALFA [Suspect]
     Active Substance: ERYTHROPOIETIN
     Indication: Anaemia
     Dosage: 60000 UNK, BIWEEKLY, 60000 UNITS BIWEEKLY,
     Route: 065
  7. CYCLOSPORINE [Concomitant]
     Active Substance: CYCLOSPORINE
     Indication: Large granular lymphocytosis
     Dosage: 2 MILLIGRAM/KILOGRAM, QD, CICLOSPORIN 2 MG/KG DAILY IN DIVIDED DOSES
     Route: 065
  8. CYCLOSPORINE [Concomitant]
     Active Substance: CYCLOSPORINE
     Dosage: UNK
     Route: 065

REACTIONS (1)
  - Drug ineffective [Unknown]
